FAERS Safety Report 4634300-7 (Version None)
Quarter: 2005Q2

REPORT INFORMATION
  Report Type: 
  Country: None (occurrence: None)
  Receive Date: 20050411
  Receipt Date: 20050404
  Transmission Date: 20051028
  Serious: Yes (Other)
  Sender: FDA-Public Use
  Company Number: GBWYE557305APR05

PATIENT
  Sex: Female

DRUGS (1)
  1. OVRANETTE (LEVONORGESTREL/ETHINYL ESTRADIOL, TABLET, 0) [Suspect]

REACTIONS (1)
  - MULTIPLE SCLEROSIS [None]
